FAERS Safety Report 8973976 (Version 1)
Quarter: 2012Q4

REPORT INFORMATION
  Report Type: 
  Country: US (occurrence: US)
  Receive Date: 20121218
  Receipt Date: 20121218
  Transmission Date: 20130627
  Serious: Yes (Other)
  Sender: FDA-Public Use
  Company Number: US-BRISTOL-MYERS SQUIBB COMPANY-16395402

PATIENT
  Age: 32 Year
  Sex: Female

DRUGS (2)
  1. ABILIFY [Suspect]
     Indication: BIPOLAR I DISORDER
     Dosage: Dose increased to 30mg/d on Dec2011
     Route: 048
  2. BUPROPION HCL [Concomitant]
     Route: 048

REACTIONS (2)
  - Muscle twitching [Recovered/Resolved]
  - Retching [Recovered/Resolved]
